FAERS Safety Report 8829145 (Version 2)
Quarter: 2014Q3

REPORT INFORMATION
  Report Type: Spontaneous
  Country: US (occurrence: US)
  Receive Date: 20121008
  Receipt Date: 20140805
  Transmission Date: 20150326
  Serious: Yes (Other)
  Sender: FDA-Public Use
  Company Number: US-ROCHE-788249

PATIENT
  Age: 45 Year
  Sex: Female
  Weight: 73.55 kg

DRUGS (1)
  1. ACCUTANE [Suspect]
     Active Substance: ISOTRETINOIN
     Indication: ACNE CYSTIC
     Route: 048
     Dates: start: 2000, end: 2006

REACTIONS (13)
  - Asphyxia [Unknown]
  - Irritable bowel syndrome [Unknown]
  - Depression [Unknown]
  - Ovarian cyst [Unknown]
  - Oesophagitis [Unknown]
  - Inflammatory bowel disease [Unknown]
  - Oesophageal stenosis [Unknown]
  - Impetigo [Unknown]
  - Rash [Unknown]
  - Blood cholesterol increased [Unknown]
  - Diverticulitis [Unknown]
  - Acne [Unknown]
  - Tongue discolouration [Unknown]

NARRATIVE: CASE EVENT DATE: 20050811
